FAERS Safety Report 23723018 (Version 3)
Quarter: 2025Q4

REPORT INFORMATION
  Report Type: Spontaneous
  Country: CA (occurrence: CA)
  Receive Date: 20240409
  Receipt Date: 20251208
  Transmission Date: 20260117
  Serious: Yes (Hospitalization, Other)
  Sender: PFIZER
  Company Number: CA-PFIZER INC-202400079685

PATIENT
  Age: 90 Year
  Sex: Female
  Weight: 58 kg

DRUGS (33)
  1. VYNDAMAX [Suspect]
     Active Substance: TAFAMIDIS
     Indication: Cardiac amyloidosis
     Dosage: 61 MG, 1X/DAY
     Route: 048
     Dates: start: 20231127
  2. CITALOPRAM [Concomitant]
     Active Substance: CITALOPRAM
     Dosage: UNK
  3. CITALOPRAM [Concomitant]
     Active Substance: CITALOPRAM
     Dosage: 20 MG, DAILY
     Route: 048
  4. CRESTOR [Concomitant]
     Active Substance: ROSUVASTATIN CALCIUM
     Dosage: 5 MG, DAILY
  5. IRBESARTAN [Concomitant]
     Active Substance: IRBESARTAN
     Dosage: 150 MG, DAILY
  6. IRBESARTAN [Concomitant]
     Active Substance: IRBESARTAN
     Dosage: 150 MG
     Route: 048
  7. FOLIC ACID [Concomitant]
     Active Substance: FOLIC ACID
     Dosage: UNK
  8. FOLIC ACID [Concomitant]
     Active Substance: FOLIC ACID
     Dosage: 5 MG, AS DIRECTED, DAILY EXCEPT EVERY OTHER SAT (ON METHOTREXATE DAY)
     Route: 048
  9. FUROSEMIDE [Concomitant]
     Active Substance: FUROSEMIDE
     Dosage: 20 MG, DAILY
  10. FUROSEMIDE [Concomitant]
     Active Substance: FUROSEMIDE
     Dosage: 40 MG
     Route: 048
  11. LASIX [Concomitant]
     Active Substance: FUROSEMIDE
     Dosage: 20 MG
  12. LASIX [Concomitant]
     Active Substance: FUROSEMIDE
     Dosage: 40 MG
  13. MEMANTINE [Concomitant]
     Active Substance: MEMANTINE
     Dosage: UNK
  14. MEMANTINE [Concomitant]
     Active Substance: MEMANTINE
     Dosage: 10 MG, DAILY
     Route: 048
  15. METHOTREXATE [Concomitant]
     Active Substance: METHOTREXATE
     Dosage: UNK
  16. METHOTREXATE [Concomitant]
     Active Substance: METHOTREXATE
     Dosage: 2.5 MG, Q2WEEK
     Route: 048
  17. MIRABEGRON [Concomitant]
     Active Substance: MIRABEGRON
     Dosage: 25 MG AT BEDTIME
  18. PANTOPRAZOLE [Concomitant]
     Active Substance: PANTOPRAZOLE
     Dosage: 40 MG, DAILY
  19. PANTOPRAZOLE [Concomitant]
     Active Substance: PANTOPRAZOLE
     Dosage: 40 MG, DAILY
     Route: 048
  20. PREDNISONE [Concomitant]
     Active Substance: PREDNISONE
     Dosage: 5 MG, DAILY
  21. PREDNISONE [Concomitant]
     Active Substance: PREDNISONE
     Dosage: 5 MG, DAILY, CC BREAKFAST
     Route: 048
  22. ROSUVASTATIN [Concomitant]
     Active Substance: ROSUVASTATIN
     Dosage: 5 MG, AT BES TIME
     Route: 048
  23. VITAMIN B12 [Concomitant]
     Active Substance: CYANOCOBALAMIN
     Dosage: 1000 UG, DAILY
     Route: 048
  24. VITAMIN D3 [Concomitant]
     Active Substance: CHOLECALCIFEROL
     Dosage: UNK, 1000 UNIT/DROP ORAL DROP (ADULT) 1,000 UNIT, PO, DAILY
     Route: 048
  25. FESOTERODINE [Concomitant]
     Active Substance: FESOTERODINE
     Dosage: 4 MG, AS NEEDED
     Route: 048
  26. MIRTAZAPINE [Concomitant]
     Active Substance: MIRTAZAPINE
     Dosage: 15 MG, AT BED TIME
     Route: 048
  27. TRAZODONE [Concomitant]
     Active Substance: TRAZODONE HYDROCHLORIDE
     Dosage: 100 MG, AT BED TIME
     Route: 048
  28. ZOPICLONE [Concomitant]
     Active Substance: ZOPICLONE
     Dosage: 7.5 MG, AT BED TIME
     Route: 048
  29. POLYETHYLENE GLYCOL 3350 [Concomitant]
     Active Substance: POLYETHYLENE GLYCOL 3350
     Dosage: 17 G, DAILY, PRN
     Route: 048
  30. ACARBOSE [Concomitant]
     Active Substance: ACARBOSE
     Dosage: 75 MG, BEFORE BREAKFAST
     Route: 048
  31. QUETIAPINE [Concomitant]
     Active Substance: QUETIAPINE
     Dosage: 6.25 MG, DAILY, USED ~ 3-4 TIME? PRN
     Route: 048
     Dates: start: 20251006
  32. QUETIAPINE [Concomitant]
     Active Substance: QUETIAPINE
     Dosage: 12.5 MG, AT BEDTIME
     Route: 048
  33. VENTOLIN [Concomitant]
     Active Substance: ALBUTEROL SULFATE
     Dosage: 2 PUFF, PRN
     Route: 055

REACTIONS (27)
  - Nausea [Unknown]
  - Vomiting [Unknown]
  - Gastric volvulus [Recovered/Resolved]
  - Gastrointestinal haemorrhage [Unknown]
  - Blood pressure systolic increased [Unknown]
  - COVID-19 [Unknown]
  - Cardiac failure [Recovered/Resolved]
  - Pulmonary congestion [Unknown]
  - Electrocardiogram QT prolonged [Unknown]
  - Syncope [Recovered/Resolved]
  - Tooth infection [Unknown]
  - Gingivitis [Unknown]
  - Haemoglobin decreased [Unknown]
  - Mean cell volume decreased [Unknown]
  - Red cell distribution width increased [Unknown]
  - Blood chloride increased [Unknown]
  - Thyroxine free decreased [Unknown]
  - Blood iron decreased [Unknown]
  - Transferrin saturation decreased [Unknown]
  - Pleural effusion [Unknown]
  - Spinal osteoarthritis [Unknown]
  - Productive cough [Not Recovered/Not Resolved]
  - Wheezing [Recovered/Resolved]
  - QRS axis abnormal [Unknown]
  - Cardiac murmur [Unknown]
  - Blood pressure systolic decreased [Unknown]
  - Serum ferritin increased [Unknown]

NARRATIVE: CASE EVENT DATE: 20240101
